FAERS Safety Report 17164612 (Version 1)
Quarter: 2019Q4

REPORT INFORMATION
  Report Type: Spontaneous
  Country: US (occurrence: US)
  Receive Date: 20191217
  Receipt Date: 20191217
  Transmission Date: 20200122
  Serious: Yes (Other)
  Sender: FDA-Public Use
  Company Number: US-ABBVIE-19K-163-3193082-00

PATIENT
  Age: 70 Year
  Sex: Male
  Weight: 61.29 kg

DRUGS (2)
  1. IMBRUVICA [Suspect]
     Active Substance: IBRUTINIB
     Indication: WALDENSTROM^S MACROGLOBULINAEMIA
     Route: 048
  2. IMBRUVICA [Suspect]
     Active Substance: IBRUTINIB
     Route: 048

REACTIONS (6)
  - Therapeutic product effect decreased [Unknown]
  - Abdominal discomfort [Recovered/Resolved]
  - Hypoaesthesia [Recovering/Resolving]
  - Erectile dysfunction [Not Recovered/Not Resolved]
  - Red blood cell abnormality [Recovered/Resolved]
  - Onychoclasis [Recovered/Resolved]
